FAERS Safety Report 14036667 (Version 1)
Quarter: 2017Q4

REPORT INFORMATION
  Report Type: Spontaneous
  Country: US (occurrence: US)
  Receive Date: 20171003
  Receipt Date: 20171003
  Transmission Date: 20180321
  Serious: Yes (Other)
  Sender: FDA-Public Use
  Company Number: US-ALIMERA SCIENCES LIMITED-US-IL-2017-003462

PATIENT

DRUGS (2)
  1. EYLEA [Concomitant]
     Active Substance: AFLIBERCEPT
     Indication: DIABETIC RETINAL OEDEMA
  2. ILUVIEN [Suspect]
     Active Substance: FLUOCINOLONE ACETONIDE
     Indication: DIABETIC RETINAL OEDEMA
     Dosage: 0.25 ?G, QD, RIGHT
     Route: 031
     Dates: start: 20160426, end: 20170512

REACTIONS (6)
  - Visual acuity reduced [Recovered/Resolved]
  - Medical device removal [Recovered/Resolved]
  - Corneal oedema [Recovered/Resolved]
  - Vision blurred [Recovered/Resolved]
  - Device dislocation [Recovered/Resolved]
  - Anterior chamber cell [Not Recovered/Not Resolved]

NARRATIVE: CASE EVENT DATE: 20170502
